FAERS Safety Report 17874376 (Version 1)
Quarter: 2020Q2

REPORT INFORMATION
  Report Type: Spontaneous
  Country: ES (occurrence: ES)
  Receive Date: 20200609
  Receipt Date: 20200609
  Transmission Date: 20200714
  Serious: Yes (Other)
  Sender: FDA-Public Use
  Company Number: ES-TEVA-2020-ES-1245960

PATIENT
  Age: 10 Year
  Sex: Female
  Weight: 37 kg

DRUGS (1)
  1. AMOXICILINA [AMOXICILLIN] [Suspect]
     Active Substance: AMOXICILLIN
     Indication: OTITIS MEDIA ACUTE
     Dates: start: 20200203, end: 20200203

REACTIONS (3)
  - Urticaria [Unknown]
  - Lip oedema [Unknown]
  - Feeling hot [Unknown]

NARRATIVE: CASE EVENT DATE: 20200203
